FAERS Safety Report 5069301-0 (Version None)
Quarter: 2006Q3

REPORT INFORMATION
  Report Type: 
  Country: None (occurrence: None)
  Receive Date: 20060714
  Receipt Date: 20060330
  Transmission Date: 20061208
  Serious: No
  Sender: FDA-Public Use
  Company Number: 2006SP001461

PATIENT
  Age: 91 Year
  Sex: Female
  Weight: 86.637 kg

DRUGS (7)
  1. LUNESTA [Suspect]
     Indication: INSOMNIA
     Dosage: 2 MG;HS;ORAL
     Route: 048
     Dates: start: 20060301
  2. AMLODIPINE BESYLATE [Concomitant]
  3. PANTOPRAZOLE SODIUM [Concomitant]
  4. LASIX [Concomitant]
  5. TRUSOPT [Concomitant]
  6. ALPHAGAN [Concomitant]
  7. XALATAN [Concomitant]

REACTIONS (2)
  - DRUG INEFFECTIVE [None]
  - MIDDLE INSOMNIA [None]
